FAERS Safety Report 6918816-6 (Version None)
Quarter: 2010Q3

REPORT INFORMATION
  Report Type: 
  Country: None (occurrence: None)
  Receive Date: 20100811
  Receipt Date: 20100802
  Transmission Date: 20110219
  Serious: Yes (Other)
  Sender: FDA-Public Use
  Company Number: DE-JNJFOC-20100702610

PATIENT
  Sex: Male
  Weight: 71.5 kg

DRUGS (6)
  1. RISPERDAL [Suspect]
     Indication: MENTAL IMPAIRMENT
     Route: 048
     Dates: start: 20100625, end: 20100625
  2. RISPERDAL [Suspect]
     Indication: PSYCHOTIC DISORDER
     Route: 048
     Dates: start: 20100625, end: 20100625
  3. PROMETHAZINE [Concomitant]
     Indication: ANXIETY
     Route: 048
     Dates: start: 20100608, end: 20100626
  4. PIPAMPERON [Concomitant]
     Indication: PRODUCT USED FOR UNKNOWN INDICATION
     Route: 065
  5. FENISTIL [Concomitant]
     Route: 048
     Dates: start: 20100607, end: 20100706
  6. LORAZEPAM [Concomitant]
     Indication: ANXIETY
     Route: 048
     Dates: start: 20100608, end: 20100626

REACTIONS (9)
  - APATHY [None]
  - CATATONIA [None]
  - FEEDING DISORDER [None]
  - MUSCULOSKELETAL STIFFNESS [None]
  - NEUROLEPTIC MALIGNANT SYNDROME [None]
  - OEDEMA PERIPHERAL [None]
  - PARKINSONIAN GAIT [None]
  - PYREXIA [None]
  - RESTLESSNESS [None]
